FAERS Safety Report 8846423 (Version 2)
Quarter: 2012Q4

REPORT INFORMATION
  Report Type: 
  Country: CH (occurrence: CH)
  Receive Date: 20121017
  Receipt Date: 20121024
  Transmission Date: 20130627
  Serious: Yes (Other)
  Sender: FDA-Public Use
  Company Number: CH-BAYER-2012-105039

PATIENT
  Sex: Male
  Weight: 86 kg

DRUGS (3)
  1. ASPIRIN CARDIO [Suspect]
     Dosage: 100 mg, UNK
     Route: 048
     Dates: start: 20120801, end: 20120920
  2. PARACETAMOL [Concomitant]
  3. CODEIN [Concomitant]

REACTIONS (4)
  - Vasculitis [Recovering/Resolving]
  - Joint swelling [Recovering/Resolving]
  - Petechiae [Recovering/Resolving]
  - Rash [Recovering/Resolving]
